FAERS Safety Report 7927255-0 (Version None)
Quarter: 2011Q4

REPORT INFORMATION
  Report Type: 
  Country: None (occurrence: None)
  Receive Date: 20111116
  Receipt Date: 20111101
  Transmission Date: 20120403
  Serious: Yes (Death, Other)
  Sender: FDA-Public Use
  Company Number: TPA2010A01079

PATIENT
  Age: 57 Year
  Sex: Female

DRUGS (8)
  1. CAPTOPRIL [Concomitant]
  2. SERTRALINE HYDROCHLORIDE [Concomitant]
  3. METFORMIN HCL [Concomitant]
  4. PIOGLITAZONE HYDROCHLORIDE [Suspect]
     Indication: TYPE 2 DIABETES MELLITUS
     Dosage: 30 MG (30 MG, 1 IN 1 D) PER ORAL
     Route: 048
     Dates: start: 20070726, end: 20080130
  5. SYR-322{PLACEBO}(SYR-322) [Suspect]
     Indication: TYPE 2 DIABETES MELLITUS
     Dosage: PLACEBO (1 IN 1 D) PER ORAL
     Route: 048
     Dates: start: 20070726, end: 20080130
  6. INDAPAMIDE [Concomitant]
  7. GLIMEPRIDE (GLIMEPRIDE) [Concomitant]
  8. SYR-322 (SYR-322) [Suspect]
     Indication: TYPE 2 DIABETES MELLITUS
     Dosage: 12.5 MG (12.5 MG, 1 IN 1 D), PER ORAL
     Route: 048
     Dates: start: 20080130, end: 20100302

REACTIONS (7)
  - LYMPHADENOPATHY [None]
  - MITRAL VALVE INCOMPETENCE [None]
  - SYNCOPE [None]
  - METASTASES TO LIVER [None]
  - PERICARDIAL EFFUSION [None]
  - NEUROENDOCRINE TUMOUR [None]
  - TRICUSPID VALVE INCOMPETENCE [None]
